FAERS Safety Report 7437873-4 (Version None)
Quarter: 2011Q2

REPORT INFORMATION
  Report Type: 
  Country: None (occurrence: None)
  Receive Date: 20110426
  Receipt Date: 20110420
  Transmission Date: 20111010
  Serious: Yes (Hospitalization)
  Sender: FDA-Public Use
  Company Number: A0924452A

PATIENT
  Sex: Female

DRUGS (1)
  1. DYAZIDE [Suspect]
     Route: 065
     Dates: start: 19930101

REACTIONS (1)
  - RHABDOMYOLYSIS [None]
